FAERS Safety Report 14966626 (Version 4)
Quarter: 2018Q4

REPORT INFORMATION
  Report Type: Spontaneous
  Country: US (occurrence: US)
  Receive Date: 20180604
  Receipt Date: 20181119
  Transmission Date: 20190204
  Serious: Yes (Hospitalization, Other)
  Sender: FDA-Public Use
  Company Number: US-BIOGEN-2018BI00588785

PATIENT
  Age: 16 Year
  Sex: Male

DRUGS (1)
  1. SPINRAZA [Suspect]
     Active Substance: NUSINERSEN
     Indication: SPINAL MUSCULAR ATROPHY
     Route: 065
     Dates: start: 20180523

REACTIONS (11)
  - Heart rate increased [Unknown]
  - Catheter site injury [Unknown]
  - Nephrolithiasis [Unknown]
  - Arthralgia [Unknown]
  - Lethargy [Unknown]
  - Spinal shock [Unknown]
  - Genital pain [Recovered/Resolved]
  - Bladder spasm [Unknown]
  - Vascular device infection [Unknown]
  - Urethral spasm [Unknown]
  - Headache [Unknown]

NARRATIVE: CASE EVENT DATE: 201805
